FAERS Safety Report 10243016 (Version 2)
Quarter: 2014Q3

REPORT INFORMATION
  Report Type: Spontaneous
  Country: BR (occurrence: BR)
  Receive Date: 20140618
  Receipt Date: 20140827
  Transmission Date: 20150326
  Serious: Yes (Death, Other)
  Sender: FDA-Public Use
  Company Number: BR-ABBVIE-14K-020-1248845-00

PATIENT
  Age: 1 Day
  Weight: 1.52 kg

DRUGS (4)
  1. VITAMIN K [Concomitant]
     Active Substance: PHYTONADIONE
     Indication: PROPHYLAXIS
  2. SURVANTA [Suspect]
     Active Substance: BERACTANT
     Indication: PRODUCT USED FOR UNKNOWN INDICATION
     Dosage: UNIQUE DOSE OF 6 ML, ENDOTRACHEAL ROUTE
     Dates: start: 20140528, end: 20140528
  3. VITAMIN K [Concomitant]
     Active Substance: PHYTONADIONE
     Indication: HAEMORRHAGIC DISEASE OF NEWBORN
     Dates: start: 20140528, end: 20140528
  4. AMINOPHYLLINE [Concomitant]
     Active Substance: AMINOPHYLLINE
     Indication: APNOEA NEONATAL
     Dates: start: 20140528, end: 20140528

REACTIONS (2)
  - Sepsis [Fatal]
  - Pulmonary haemorrhage [Fatal]

NARRATIVE: CASE EVENT DATE: 20140530
